FAERS Safety Report 8600325-X (Version None)
Quarter: 2012Q3

REPORT INFORMATION
  Report Type: 
  Country: None (occurrence: None)
  Receive Date: 20120817
  Receipt Date: 20120808
  Transmission Date: 20120928
  Serious: Yes (Hospitalization, Other)
  Sender: FDA-Public Use
  Company Number: US-BRISTOL-MYERS SQUIBB COMPANY-16819211

PATIENT
  Age: 73 Year
  Sex: Male

DRUGS (5)
  1. ROBAXIN [Concomitant]
  2. MS CONTIN [Concomitant]
  3. DEXAMETHASONE [Concomitant]
  4. YERVOY [Suspect]
     Indication: METASTATIC MALIGNANT MELANOMA
     Dosage: 300MGX1 DOSE
     Route: 042
     Dates: start: 20120713
  5. VICODIN [Concomitant]

REACTIONS (1)
  - ATRIAL FIBRILLATION [None]
